FAERS Safety Report 7073153-7 (Version None)
Quarter: 2010Q4

REPORT INFORMATION
  Report Type: 
  Country: None (occurrence: None)
  Receive Date: 20101029
  Receipt Date: 20100503
  Transmission Date: 20110411
  Serious: No
  Sender: FDA-Public Use
  Company Number: A0857711A

PATIENT
  Age: 63 Year
  Sex: Male

DRUGS (10)
  1. ADVAIR DISKUS 100/50 [Suspect]
     Indication: CHRONIC OBSTRUCTIVE PULMONARY DISEASE
     Dosage: 1PUFF TWICE PER DAY
     Route: 055
     Dates: start: 20070101
  2. ADVAIR DISKUS 100/50 [Suspect]
     Dosage: 1PUFF TWICE PER DAY
     Route: 055
     Dates: start: 20090701
  3. SPIRIVA [Concomitant]
  4. PAIN MEDICATIONS [Concomitant]
  5. VYTORIN [Concomitant]
  6. SIMVASTATIN [Concomitant]
  7. TRAZODONE [Concomitant]
  8. GABAPENTIN [Concomitant]
  9. METHADONE [Concomitant]
  10. BACLOFEN [Concomitant]

REACTIONS (1)
  - VISION BLURRED [None]
